FAERS Safety Report 18004437 (Version 2)
Quarter: 2023Q1

REPORT INFORMATION
  Report Type: Spontaneous
  Country: BR (occurrence: BR)
  Receive Date: 20200710
  Receipt Date: 20230304
  Transmission Date: 20230417
  Serious: Yes (Hospitalization, Other)
  Sender: FDA-Public Use
  Company Number: BR-ABBVIE-20K-020-3470944-00

PATIENT
  Age: 49 Year
  Sex: Male
  Weight: 88 kg

DRUGS (16)
  1. HUMIRA [Suspect]
     Active Substance: ADALIMUMAB
     Indication: Ankylosing spondylitis
     Dosage: FORM STRENGTH UNITS: 40 MILLIGRAM
     Route: 058
     Dates: start: 201505, end: 201810
  2. HUMIRA [Suspect]
     Active Substance: ADALIMUMAB
     Dosage: FORM STRENGTH UNITS: 40 MILLIGRAM
     Route: 058
     Dates: start: 2022, end: 2022
  3. HUMIRA [Suspect]
     Active Substance: ADALIMUMAB
     Dosage: FORM STRENGTH UNITS: 40 MILLIGRAM
     Route: 058
     Dates: end: 202201
  4. BISOPROLOL FUMARATE [Concomitant]
     Active Substance: BISOPROLOL FUMARATE
     Indication: Heart rate
     Dosage: AT NIGHT?FORM STRENGTH UNITS:5- MILLIGRAM?START DATE TEXT: AROUND APR-2015
     Route: 048
  5. PANTOPRAZOLE [Concomitant]
     Active Substance: PANTOPRAZOLE
     Indication: Gastritis
     Dosage: 20 MILLIGRAM
     Route: 048
  6. PANTOPRAZOLE [Concomitant]
     Active Substance: PANTOPRAZOLE
     Indication: Gastritis
     Dosage: IN THE MORNING
     Route: 048
  7. Acetylsalicylic acid (ASPIRINA PREVENT) [Concomitant]
     Indication: Product used for unknown indication
     Dosage: FORM STRENGTH UNITS: 100 MILLIGRAM
     Route: 048
  8. VITAMIN D3 (ADDERA) [Concomitant]
     Indication: Vitamin D deficiency
     Dosage: IN THE THURSDAY?FORM STRENGTH: 7 MG
     Route: 048
     Dates: start: 2015
  9. VIMINOL(DIVIDOL) [Concomitant]
     Indication: Ankylosing spondylitis
     Dosage: 40 MG EVERY 12 HOURS WHEN EXPERIENCED HEAT IN THE LEGS JOINTS?FORM STRENGTH: 40 MG
     Route: 048
     Dates: start: 20200429
  10. DULOXETINE HYDROCHLORIDE [Concomitant]
     Active Substance: DULOXETINE HYDROCHLORIDE
     Indication: Ankylosing spondylitis
     Dosage: 40 MG EVERY 12 HOURS WHEN EXPERIENCED PAINS?PRODUCT IS TREATMEMNT?FORM STRENGTH UNITS: 40 MILLIGRAM
     Route: 048
     Dates: start: 2017
  11. Trezor [Concomitant]
     Indication: Product used for unknown indication
     Dosage: FORM STRENGTH: 40 MG
     Route: 048
     Dates: start: 201410
  12. INDOMETHACIN [Concomitant]
     Active Substance: INDOMETHACIN
     Indication: Bone pain
     Dosage: 50 MG EVERY 12 HOURS WHEN EXPERIENCED PAINS?FORM STRENGTH UNITS:50  MILLIGRAM
     Route: 048
     Dates: start: 2017
  13. ASPIRIN [Concomitant]
     Active Substance: ASPIRIN
     Indication: Product used for unknown indication
     Dates: start: 201410
  14. OXOTRON [Concomitant]
     Indication: Product used for unknown indication
     Dosage: FORM STRENGTH: 60 MILLIGRAM
     Dates: start: 20221010
  15. METHOTREXATE [Concomitant]
     Active Substance: METHOTREXATE
     Indication: Product used for unknown indication
     Dosage: FORM STRENGTH - 0.25 MILLIGRAM
     Route: 048
     Dates: start: 20221010
  16. METHOTREXATE [Concomitant]
     Active Substance: METHOTREXATE
     Indication: Product used for unknown indication
     Dosage: FORM STRENGTH - 0.25 MILLIGRAM
     Route: 048
     Dates: end: 2020

REACTIONS (29)
  - Venous occlusion [Unknown]
  - Bronchitis [Recovered/Resolved]
  - Pneumonia [Recovered/Resolved]
  - Arthralgia [Not Recovered/Not Resolved]
  - Arthralgia [Not Recovered/Not Resolved]
  - Gastritis [Unknown]
  - Joint swelling [Not Recovered/Not Resolved]
  - Skin fissures [Unknown]
  - Burning sensation [Unknown]
  - Gait disturbance [Unknown]
  - Neck pain [Not Recovered/Not Resolved]
  - Walking aid user [Unknown]
  - Pain [Not Recovered/Not Resolved]
  - Arthropathy [Unknown]
  - Chest discomfort [Unknown]
  - H1N1 influenza [Recovered/Resolved]
  - Fall [Unknown]
  - Coordination abnormal [Unknown]
  - Immunodeficiency [Recovered/Resolved]
  - Bone pain [Unknown]
  - Spinal pain [Unknown]
  - Arthralgia [Not Recovered/Not Resolved]
  - COVID-19 [Recovered/Resolved]
  - Product outer packaging issue [Unknown]
  - Pain in extremity [Not Recovered/Not Resolved]
  - Arthropathy [Unknown]
  - Drug ineffective [Not Recovered/Not Resolved]
  - Product preparation error [Unknown]
  - Cardiac disorder [Unknown]

NARRATIVE: CASE EVENT DATE: 20161101
